FAERS Safety Report 5973971-X (Version None)
Quarter: 2008Q4

REPORT INFORMATION
  Report Type: 
  Country: None (occurrence: None)
  Receive Date: 20081201
  Receipt Date: 20080122
  Transmission Date: 20090506
  Serious: No
  Sender: FDA-Public Use
  Company Number: US-AMGEN-KDL261907

PATIENT
  Sex: Female

DRUGS (15)
  1. ENBREL [Suspect]
     Indication: POLYARTHRITIS
  2. AMBIEN [Concomitant]
     Route: 048
  3. CALCIUM [Concomitant]
  4. FOLIC ACID [Concomitant]
  5. HYDROCHLOROTHIAZIDE [Concomitant]
     Route: 048
  6. PLAQUENIL [Concomitant]
     Route: 048
  7. K-DUR [Concomitant]
  8. LEVOXYL [Concomitant]
     Route: 048
  9. LEXAPRO [Concomitant]
     Route: 048
  10. METHOTREXATE [Concomitant]
     Route: 048
  11. MULTI-VITAMINS [Concomitant]
     Route: 048
  12. TYLENOL (CAPLET) [Concomitant]
  13. XANAX [Concomitant]
  14. ZANTAC [Concomitant]
     Route: 048
  15. ZIAC [Concomitant]
     Route: 048

REACTIONS (1)
  - MYALGIA [None]
